FAERS Safety Report 9467146 (Version 2)
Quarter: 2013Q4

REPORT INFORMATION
  Report Type: Report from Study
  Country: CA (occurrence: CA)
  Receive Date: 20130820
  Receipt Date: 20131202
  Transmission Date: 20140711
  Serious: Yes (Hospitalization)
  Sender: FDA-Public Use
  Company Number: CA-SANOFI-AVENTIS-2013SA081508

PATIENT
  Age: 68 Year
  Sex: Female
  Weight: 77.1 kg

DRUGS (6)
  1. AVALIDE [Suspect]
     Indication: PRODUCT USED FOR UNKNOWN INDICATION
     Route: 065
  2. DICLOFENAC SODIUM [Suspect]
     Indication: PRODUCT USED FOR UNKNOWN INDICATION
     Route: 065
  3. NSAID^S [Suspect]
     Indication: PRODUCT USED FOR UNKNOWN INDICATION
     Route: 065
  4. BLINDED THERAPY [Suspect]
     Indication: PROPHYLAXIS
     Dosage: DOSE: DOUBLE BLIND
     Route: 058
     Dates: start: 20121206, end: 20121206
  5. BLINDED THERAPY [Suspect]
     Indication: PROPHYLAXIS
     Dosage: DOSE: DOUBLE BLIND
     Route: 058
     Dates: start: 20121219, end: 20121219
  6. ALL OTHER THERAPEUTIC PRODUCTS [Suspect]
     Indication: PRODUCT USED FOR UNKNOWN INDICATION
     Route: 058

REACTIONS (4)
  - Cystitis [Recovering/Resolving]
  - Hydronephrosis [Recovering/Resolving]
  - Renal failure acute [Recovered/Resolved]
  - Asthenia [Recovering/Resolving]
